FAERS Safety Report 4583604-5 (Version None)
Quarter: 2005Q1

REPORT INFORMATION
  Report Type: 
  Country: None (occurrence: None)
  Receive Date: 20050211
  Receipt Date: 20050201
  Transmission Date: 20050727
  Serious: Yes (Other)
  Sender: FDA-Public Use
  Company Number: 200510240GDS

PATIENT

DRUGS (2)
  1. CIPROFLOXACIN [Suspect]
  2. DICLOFENAC [Suspect]

REACTIONS (2)
  - DUODENAL ULCER [None]
  - GASTRITIS EROSIVE [None]
